FAERS Safety Report 19052011 (Version 2)
Quarter: 2021Q2

REPORT INFORMATION
  Report Type: Spontaneous
  Country: NL (occurrence: NL)
  Receive Date: 20210324
  Receipt Date: 20210505
  Transmission Date: 20210717
  Serious: Yes (Death, Life-Threatening, Hospitalization, Other)
  Sender: FDA-Public Use
  Company Number: NL-ACCORD-219990

PATIENT
  Age: 71 Year
  Sex: Male
  Weight: 94 kg

DRUGS (3)
  1. ZOLEDRONIC ACID [Suspect]
     Active Substance: ZOLEDRONIC ACID
     Indication: HYPERCALCAEMIA
     Dosage: MONTHLY
     Dates: start: 201703, end: 201706
  2. DOCETAXEL. [Concomitant]
     Active Substance: DOCETAXEL
     Indication: METASTASES TO BONE
  3. PREDNISONE. [Concomitant]
     Active Substance: PREDNISONE
     Indication: METASTASES TO BONE

REACTIONS (3)
  - Toxicity to various agents [Fatal]
  - Nephropathy toxic [Fatal]
  - Tubulointerstitial nephritis [Fatal]

NARRATIVE: CASE EVENT DATE: 201706
